FAERS Safety Report 17566558 (Version 1)
Quarter: 2020Q1

REPORT INFORMATION
  Report Type: Report from Study
  Country: CA (occurrence: CA)
  Receive Date: 20200320
  Receipt Date: 20200320
  Transmission Date: 20200409
  Serious: Yes (Other)
  Sender: FDA-Public Use
  Company Number: CA-PFIZER INC-2020118227

PATIENT
  Age: 46 Year
  Sex: Female
  Weight: 68 kg

DRUGS (21)
  1. METHOTREXATE SODIUM. [Suspect]
     Active Substance: METHOTREXATE SODIUM
     Route: 048
  2. RITUXIMAB. [Suspect]
     Active Substance: RITUXIMAB
     Indication: PEMPHIGUS
     Dosage: UNK
     Route: 042
  3. LIDOCAINE. [Concomitant]
     Active Substance: LIDOCAINE
  4. ACYCLOVIR. [Concomitant]
     Active Substance: ACYCLOVIR
  5. GABAPENTIN. [Concomitant]
     Active Substance: GABAPENTIN
  6. LORAZEPAM. [Concomitant]
     Active Substance: LORAZEPAM
  7. PREDNISONE. [Concomitant]
     Active Substance: PREDNISONE
  8. CLINDAMYCIN. [Concomitant]
     Active Substance: CLINDAMYCIN
  9. DIPHENHYDRAMINE HYDROCHLORIDE. [Concomitant]
     Active Substance: DIPHENHYDRAMINE HYDROCHLORIDE
     Indication: PREMEDICATION
     Dosage: 25 MG, 2X/DAY
     Route: 042
  10. FLUCONAZOLE. [Concomitant]
     Active Substance: FLUCONAZOLE
  11. NYSTATIN. [Concomitant]
     Active Substance: NYSTATIN
  12. AZATHIOPRINE. [Concomitant]
     Active Substance: AZATHIOPRINE
  13. RITUXIMAB. [Suspect]
     Active Substance: RITUXIMAB
     Indication: PEMPHIGOID
  14. METHYLPREDNISOLONE. [Concomitant]
     Active Substance: METHYLPREDNISOLONE
  15. MORPHINE [Concomitant]
     Active Substance: MORPHINE
  16. RITUXIMAB. [Suspect]
     Active Substance: RITUXIMAB
     Indication: PEMPHIGUS
     Dosage: 1000 MG, CYCLIC EVERY 15 DAYS
     Route: 042
  17. RITUXIMAB. [Suspect]
     Active Substance: RITUXIMAB
     Indication: PEMPHIGOID
  18. ACETAMINOPHEN. [Concomitant]
     Active Substance: ACETAMINOPHEN
     Indication: PREMEDICATION
     Dosage: 650 MG, UNK
     Route: 048
  19. DEMEROL [Concomitant]
     Active Substance: MEPERIDINE HYDROCHLORIDE
  20. MYCOPHENOLATE [Concomitant]
     Active Substance: MYCOPHENOLIC ACID
  21. STATEX [Concomitant]

REACTIONS (23)
  - Arthritis [Not Recovered/Not Resolved]
  - Pain [Not Recovered/Not Resolved]
  - Rash [Not Recovered/Not Resolved]
  - Blood pressure fluctuation [Not Recovered/Not Resolved]
  - Blood pressure increased [Not Recovered/Not Resolved]
  - Body temperature increased [Not Recovered/Not Resolved]
  - Pruritus [Not Recovered/Not Resolved]
  - Tongue disorder [Not Recovered/Not Resolved]
  - Anxiety [Not Recovered/Not Resolved]
  - Fatigue [Not Recovered/Not Resolved]
  - Lung abscess [Not Recovered/Not Resolved]
  - Nausea [Not Recovered/Not Resolved]
  - Off label use [Not Recovered/Not Resolved]
  - Oral mucosal blistering [Not Recovered/Not Resolved]
  - Sepsis [Not Recovered/Not Resolved]
  - Circumstance or information capable of leading to device use error [Not Recovered/Not Resolved]
  - Urticaria [Not Recovered/Not Resolved]
  - Aphthous ulcer [Not Recovered/Not Resolved]
  - Influenza [Not Recovered/Not Resolved]
  - Pemphigus [Not Recovered/Not Resolved]
  - Aphonia [Not Recovered/Not Resolved]
  - Infusion related reaction [Not Recovered/Not Resolved]
  - Product use in unapproved indication [Not Recovered/Not Resolved]
